FAERS Safety Report 17368545 (Version 1)
Quarter: 2020Q1

REPORT INFORMATION
  Report Type: Spontaneous
  Country: US (occurrence: US)
  Receive Date: 20200120
  Receipt Date: 20200120
  Transmission Date: 20200409
  Serious: No
  Sender: FDA-Public Use
  Company Number: None

PATIENT
  Sex: Female

DRUGS (4)
  1. TOBRAMYCIN (56AMP/28DAY) [Suspect]
     Active Substance: TOBRAMYCIN
     Indication: BURKHOLDERIA MALLEI INFECTION
     Route: 055
     Dates: start: 201708
  2. TOBRAMYCIN (56AMP/28DAY) [Suspect]
     Active Substance: TOBRAMYCIN
     Indication: PNEUMONIA PSEUDOMONAL
     Route: 055
     Dates: start: 201708
  3. TOBRAMYCIN (56AMP/28DAY) [Suspect]
     Active Substance: TOBRAMYCIN
     Indication: CHRONIC OBSTRUCTIVE PULMONARY DISEASE
     Route: 055
     Dates: start: 201708
  4. TOBRAMYCIN (56AMP/28DAY) [Suspect]
     Active Substance: TOBRAMYCIN
     Indication: PSEUDOMONAS INFECTION
     Route: 055
     Dates: start: 201708

REACTIONS (2)
  - Hypersensitivity [None]
  - Drug hypersensitivity [None]
